FAERS Safety Report 6587663-X (Version None)
Quarter: 2010Q1

REPORT INFORMATION
  Report Type: 
  Country: None (occurrence: None)
  Receive Date: 20100217
  Receipt Date: 20100217
  Transmission Date: 20100710
  Serious: Yes (Hospitalization, Disabling)
  Sender: FDA-Public Use
  Company Number: None

PATIENT
  Age: 91 Year
  Sex: Female
  Weight: 73 kg

DRUGS (9)
  1. WARFARIN SODIUM [Suspect]
     Dosage: 10MG QD PO
     Route: 048
     Dates: start: 20100130, end: 20100202
  2. SIMVASTATIN [Concomitant]
  3. METOPROLOL TARTRATE [Concomitant]
  4. ASPIRIN [Concomitant]
  5. AZITHROMYCIN [Concomitant]
  6. GLIPIZIDE [Concomitant]
  7. GUAIFENESIN [Concomitant]
  8. MECLIZINE [Concomitant]
  9. PANTOPRAZOLE [Concomitant]

REACTIONS (1)
  - INTERNATIONAL NORMALISED RATIO INCREASED [None]
